FAERS Safety Report 24611779 (Version 1)
Quarter: 2024Q4

REPORT INFORMATION
  Report Type: Spontaneous
  Country: US (occurrence: US)
  Receive Date: 20241113
  Receipt Date: 20241113
  Transmission Date: 20250115
  Serious: No
  Sender: GLENMARK
  Company Number: US-GLENMARK PHARMACEUTICALS-2024GMK088898

PATIENT

DRUGS (1)
  1. FLUOCINOLONE ACETONIDE [Suspect]
     Active Substance: FLUOCINOLONE ACETONIDE
     Indication: Product used for unknown indication
     Dosage: UNK, (FORMULATION: OIL)
     Route: 065

REACTIONS (1)
  - Treatment failure [Unknown]
